FAERS Safety Report 7146056-7 (Version None)
Quarter: 2010Q4

REPORT INFORMATION
  Report Type: 
  Country: None (occurrence: None)
  Receive Date: 20101208
  Receipt Date: 20101018
  Transmission Date: 20110411
  Serious: No
  Sender: FDA-Public Use
  Company Number: US-BAYER-201023127BCC

PATIENT
  Sex: Male
  Weight: 93.182 kg

DRUGS (1)
  1. ALEVE [Suspect]
     Indication: PRODUCT USED FOR UNKNOWN INDICATION
     Dosage: UNK, IRR
     Route: 048
     Dates: start: 20100101

REACTIONS (1)
  - BLOOD PRESSURE INCREASED [None]
